FAERS Safety Report 17857286 (Version 1)
Quarter: 2020Q2

REPORT INFORMATION
  Report Type: Spontaneous
  Country: OM (occurrence: OM)
  Receive Date: 20200603
  Receipt Date: 20200603
  Transmission Date: 20200714
  Serious: Yes (Other)
  Sender: FDA-Public Use
  Company Number: OM-US-PROVELL PHARMACEUTICALS LLC-9166416

PATIENT
  Age: 31 Year
  Sex: Female

DRUGS (1)
  1. EUTHYROX [Suspect]
     Active Substance: LEVOTHYROXINE SODIUM
     Indication: PRODUCT USED FOR UNKNOWN INDICATION
     Dosage: ONE AND HALF PER DAY AND 2 ON FRIDAY AND SATURDAY

REACTIONS (6)
  - Prolapse [Unknown]
  - Fatigue [Unknown]
  - Hypothyroidism [Unknown]
  - Enzyme level increased [Unknown]
  - Lethargy [Unknown]
  - Benign neoplasm [Unknown]
